FAERS Safety Report 8093007-7 (Version None)
Quarter: 2012Q1

REPORT INFORMATION
  Report Type: 
  Country: None (occurrence: None)
  Receive Date: 20120128
  Receipt Date: 20110927
  Transmission Date: 20120608
  Serious: No
  Sender: FDA-Public Use
  Company Number: US-ABBOTT-08P-163-0436341-00

PATIENT
  Sex: Male
  Weight: 77.18 kg

DRUGS (18)
  1. MOTRIN [Concomitant]
     Route: 048
  2. PREDNISONE TAB [Concomitant]
     Indication: INFLAMMATION
     Route: 048
     Dates: start: 20080101
  3. HUMIRA [Suspect]
     Route: 058
     Dates: start: 20020101, end: 20080701
  4. PREDNISONE TAB [Concomitant]
     Indication: RHEUMATOID ARTHRITIS
  5. ACETAMINOPHEN [Concomitant]
     Indication: RHEUMATOID ARTHRITIS
  6. HUMIRA [Suspect]
     Indication: RHEUMATOID ARTHRITIS
     Route: 058
     Dates: start: 20020101, end: 20020101
  7. HUMIRA [Suspect]
     Route: 058
     Dates: start: 20050801, end: 20071224
  8. METHOTREXATE [Concomitant]
     Indication: RHEUMATOID ARTHRITIS
     Route: 048
     Dates: start: 19980101, end: 20080102
  9. VICODIN [Concomitant]
     Indication: RHEUMATOID ARTHRITIS
     Dosage: 2 TABS BID UP TO QID
     Route: 048
  10. VITAMIN TAB [Concomitant]
     Indication: VITAMIN SUPPLEMENTATION
     Route: 048
  11. HUMIRA [Suspect]
     Route: 050
     Dates: start: 20040927, end: 20080530
  12. HUMIRA [Suspect]
     Route: 058
     Dates: start: 20080107, end: 20080530
  13. METHOTREXATE [Concomitant]
     Route: 048
  14. MOTRIN [Concomitant]
     Indication: PAIN MANAGEMENT
     Route: 048
     Dates: start: 20080123
  15. FOLIC ACID [Concomitant]
     Indication: RHEUMATOID ARTHRITIS
  16. DEPO-MEDROL [Concomitant]
     Indication: RHEUMATOID ARTHRITIS
     Route: 030
     Dates: start: 20080108, end: 20080108
  17. VICODIN [Concomitant]
     Indication: PAIN MANAGEMENT
     Route: 048
     Dates: start: 20080121
  18. FOLIC ACID [Concomitant]
     Indication: VITAMIN SUPPLEMENTATION
     Route: 048

REACTIONS (13)
  - DIVERTICULITIS [None]
  - RASH [None]
  - JOINT STIFFNESS [None]
  - PAIN [None]
  - PARANASAL SINUS HYPERSECRETION [None]
  - PLEURAL FIBROSIS [None]
  - INFLAMMATION [None]
  - DRUG EFFECT DELAYED [None]
  - SINUSITIS [None]
  - PRODUCTIVE COUGH [None]
  - SUICIDAL IDEATION [None]
  - ARTHRALGIA [None]
  - DRUG INEFFECTIVE [None]
